FAERS Safety Report 19789981 (Version 1)
Quarter: 2021Q3

REPORT INFORMATION
  Report Type: Spontaneous
  Country: TR (occurrence: TR)
  Receive Date: 20210904
  Receipt Date: 20210904
  Transmission Date: 20211014
  Serious: Yes (Hospitalization, Other)
  Sender: FDA-Public Use
  Company Number: TR-UCBSA-2021040932

PATIENT
  Age: 5 Month
  Sex: Male

DRUGS (3)
  1. PHENOBARBITAL. [Concomitant]
     Active Substance: PHENOBARBITAL
     Indication: SEIZURE
     Dosage: 4.3 MG/KG/DAY
  2. DIGOXIN. [Concomitant]
     Active Substance: DIGOXIN
     Indication: TACHYCARDIA
     Dosage: 0.005 MG/KG/DAY
  3. KEPPRA [Suspect]
     Active Substance: LEVETIRACETAM
     Indication: SEIZURE
     Dosage: 28 MG/KG/DAY

REACTIONS (5)
  - Pneumonia [Unknown]
  - Seizure [Unknown]
  - Poor sucking reflex [Unknown]
  - Agitation [Unknown]
  - C-reactive protein increased [Unknown]
